FAERS Safety Report 17170508 (Version 2)
Quarter: 2020Q1

REPORT INFORMATION
  Report Type: Report from Study
  Country: None (occurrence: US)
  Receive Date: 20191218
  Receipt Date: 20200128
  Transmission Date: 20200409
  Serious: Yes (Hospitalization, Other)
  Sender: FDA-Public Use
  Company Number: US-ABBVIE-19P-163-3195083-00

PATIENT
  Age: 63 Year
  Sex: Male

DRUGS (2)
  1. IMBRUVICA [Suspect]
     Active Substance: IBRUTINIB
     Route: 048
  2. IMBRUVICA [Suspect]
     Active Substance: IBRUTINIB
     Indication: CHRONIC LYMPHOCYTIC LEUKAEMIA
     Route: 048
     Dates: start: 20180921

REACTIONS (6)
  - Abdominal pain upper [Unknown]
  - Leg amputation [Unknown]
  - Product dose omission [Unknown]
  - Depression [Unknown]
  - Stress [Unknown]
  - Knee operation [Unknown]

NARRATIVE: CASE EVENT DATE: 20200119
